FAERS Safety Report 24577698 (Version 3)
Quarter: 2024Q4

REPORT INFORMATION
  Report Type: Spontaneous
  Country: JP (occurrence: JP)
  Receive Date: 20241104
  Receipt Date: 20241211
  Transmission Date: 20250114
  Serious: Yes (Hospitalization, Other)
  Sender: SUNOVION
  Company Number: JP-dspharma-2024SMP013972AA

PATIENT

DRUGS (36)
  1. LATUDA [Suspect]
     Active Substance: LURASIDONE HYDROCHLORIDE
     Indication: Depression
     Dosage: 20 MG, QD
     Route: 048
     Dates: start: 20240816, end: 20240820
  2. LATUDA [Suspect]
     Active Substance: LURASIDONE HYDROCHLORIDE
     Indication: Hallucination
     Dosage: 40 MG, QD
     Route: 048
     Dates: start: 20240821
  3. LATUDA [Suspect]
     Active Substance: LURASIDONE HYDROCHLORIDE
     Indication: Delusion
  4. BLONANSERIN [Suspect]
     Active Substance: BLONANSERIN
     Indication: Hallucination
     Dosage: 40 MG, QD
     Route: 062
     Dates: start: 20240830, end: 20240926
  5. BLONANSERIN [Suspect]
     Active Substance: BLONANSERIN
     Indication: Delusion
  6. HALOPERIDOL [Suspect]
     Active Substance: HALOPERIDOL
     Indication: Product used for unknown indication
     Dosage: 5 MG, QD
     Route: 041
     Dates: start: 20240822
  7. RISPERIDONE [Suspect]
     Active Substance: RISPERIDONE
     Indication: Product used for unknown indication
     Dosage: 1 MG, AS NECESSARY
     Route: 065
     Dates: start: 20240725, end: 20240801
  8. RISPERIDONE [Suspect]
     Active Substance: RISPERIDONE
     Dosage: 4 MG, QD
     Route: 065
     Dates: start: 20240802, end: 20240807
  9. RISPERIDONE [Suspect]
     Active Substance: RISPERIDONE
     Dosage: 6 MG, QD
     Route: 065
     Dates: start: 20240808, end: 20240814
  10. RISPERIDONE [Suspect]
     Active Substance: RISPERIDONE
     Dosage: 8 MG, QD
     Route: 065
     Dates: start: 20240815, end: 20240820
  11. RISPERIDONE [Suspect]
     Active Substance: RISPERIDONE
     Dosage: 4 MG, QD
     Route: 065
     Dates: start: 20240821, end: 20240821
  12. RISPERIDONE [Suspect]
     Active Substance: RISPERIDONE
     Dosage: 2 MG, QD
     Route: 065
     Dates: start: 20240822, end: 20240830
  13. QUETIAPINE FUMARATE [Concomitant]
     Active Substance: QUETIAPINE FUMARATE
     Dosage: 125 MG, QD
     Route: 065
     Dates: end: 20240709
  14. QUETIAPINE FUMARATE [Concomitant]
     Active Substance: QUETIAPINE FUMARATE
     Dosage: 175 MG, QD
     Route: 065
     Dates: start: 20240710, end: 20240723
  15. QUETIAPINE FUMARATE [Concomitant]
     Active Substance: QUETIAPINE FUMARATE
     Dosage: 225 MG, QD
     Route: 065
     Dates: start: 20240724, end: 20240807
  16. QUETIAPINE FUMARATE [Concomitant]
     Active Substance: QUETIAPINE FUMARATE
     Dosage: 125 MG, QD
     Route: 065
     Dates: start: 20240808, end: 20240816
  17. PAXIL [Concomitant]
     Active Substance: PAROXETINE HYDROCHLORIDE
     Dosage: 40 MG, QD
     Route: 065
     Dates: end: 20240815
  18. PAXIL [Concomitant]
     Active Substance: PAROXETINE HYDROCHLORIDE
     Dosage: 30 MG, QD
     Route: 065
     Dates: start: 20240816, end: 20240820
  19. PAXIL [Concomitant]
     Active Substance: PAROXETINE HYDROCHLORIDE
     Dosage: 40 MG, QD
     Route: 065
     Dates: start: 20240821
  20. MIRTAZAPINE [Concomitant]
     Active Substance: MIRTAZAPINE
     Dosage: 15 MG, QD
     Route: 065
     Dates: end: 20240718
  21. MIRTAZAPINE [Concomitant]
     Active Substance: MIRTAZAPINE
     Dosage: 30 MG, QD
     Route: 065
     Dates: start: 20240719, end: 20240725
  22. MIRTAZAPINE [Concomitant]
     Active Substance: MIRTAZAPINE
     Dosage: 15 MG, QD
     Route: 065
     Dates: start: 20240726, end: 20240808
  23. FLUNITRAZEPAM [Concomitant]
     Active Substance: FLUNITRAZEPAM
     Dosage: 2 MG, QD
     Route: 065
     Dates: end: 20241020
  24. FLUNITRAZEPAM [Concomitant]
     Active Substance: FLUNITRAZEPAM
     Dosage: 1 MG, QD
     Route: 065
     Dates: start: 20241021, end: 20241022
  25. FLUNITRAZEPAM [Concomitant]
     Active Substance: FLUNITRAZEPAM
     Dosage: 2 MG, QD
     Route: 065
     Dates: start: 20241023
  26. BROMAZEPAM [Concomitant]
     Active Substance: BROMAZEPAM
     Dosage: 10 MG, QD
     Route: 065
     Dates: end: 20241010
  27. BROMAZEPAM [Concomitant]
     Active Substance: BROMAZEPAM
     Dosage: 5 MG, QD
     Route: 065
     Dates: start: 20241011, end: 20241018
  28. MAGNESIUM OXIDE [Concomitant]
     Active Substance: MAGNESIUM OXIDE
     Dosage: 1980 MG, QD
     Route: 065
     Dates: start: 20240710, end: 20240718
  29. MAGNESIUM OXIDE [Concomitant]
     Active Substance: MAGNESIUM OXIDE
     Dosage: 990 MG, QD
     Route: 065
     Dates: start: 20240719
  30. OLANZAPINE [Concomitant]
     Active Substance: OLANZAPINE
     Dosage: 5 MG, QD
     Route: 065
     Dates: start: 20240725, end: 20240726
  31. OLANZAPINE [Concomitant]
     Active Substance: OLANZAPINE
     Dosage: 10 MG, QD
     Route: 065
     Dates: start: 20240727, end: 20240802
  32. HIBERNA [Concomitant]
     Active Substance: PROMETHAZINE HYDROCHLORIDE
     Dosage: 25 MG, QD
     Route: 065
     Dates: start: 20240731
  33. MIANSERIN [Concomitant]
     Active Substance: MIANSERIN
     Dosage: 10 MG, QD
     Route: 065
     Dates: start: 20240816, end: 20240821
  34. REXULTI [Concomitant]
     Active Substance: BREXPIPRAZOLE
     Dosage: 1 MG, QD
     Route: 065
     Dates: start: 20240918, end: 20240924
  35. REXULTI [Concomitant]
     Active Substance: BREXPIPRAZOLE
     Dosage: 2 MG, QD
     Route: 065
     Dates: start: 20240925
  36. ETHYL LOFLAZEPATE [Concomitant]
     Active Substance: ETHYL LOFLAZEPATE
     Dosage: 1 MG, QD
     Route: 065
     Dates: start: 20241008

REACTIONS (4)
  - Deep vein thrombosis [Recovering/Resolving]
  - Fall [Recovering/Resolving]
  - Sedation [Unknown]
  - Product use in unapproved indication [Unknown]

NARRATIVE: CASE EVENT DATE: 20240816
